FAERS Safety Report 8118675-2 (Version None)
Quarter: 2011Q4

REPORT INFORMATION
  Report Type: 
  Country: None (occurrence: None)
  Receive Date: 20111227
  Receipt Date: 20111021
  Transmission Date: 20120403
  Serious: No
  Sender: FDA-Public Use
  Company Number: PHEH2011US07063

PATIENT
  Age: 57 Year
  Sex: Male

DRUGS (3)
  1. GILENYA [Suspect]
     Indication: MULTIPLE SCLEROSIS
     Dosage: 0.5 MG, DAILY, ORAL ; 0.5 MG, BID, ORAL
     Route: 048
     Dates: start: 20111010
  2. GILENYA [Suspect]
     Indication: MULTIPLE SCLEROSIS
     Dosage: 0.5 MG, DAILY, ORAL ; 0.5 MG, BID, ORAL
     Route: 048
     Dates: start: 20111015, end: 20111015
  3. FAMPRIDINE (FAMPRIDINE) [Concomitant]

REACTIONS (3)
  - URINARY INCONTINENCE [None]
  - ACCIDENTAL OVERDOSE [None]
  - PAIN IN EXTREMITY [None]
